FAERS Safety Report 6833761-2 (Version None)
Quarter: 2010Q3

REPORT INFORMATION
  Report Type: 
  Country: None (occurrence: None)
  Receive Date: 20100712
  Receipt Date: 20070331
  Transmission Date: 20110219
  Serious: No
  Sender: FDA-Public Use
  Company Number: US-PFIZER INC-2007027278

PATIENT
  Sex: Female
  Weight: 55.79 kg

DRUGS (4)
  1. CHANTIX [Suspect]
     Indication: SMOKING CESSATION THERAPY
     Dates: start: 20070326
  2. CALCIUM [Concomitant]
  3. ALLEGRA D 24 HOUR [Concomitant]
  4. AMOXICILLIN [Concomitant]

REACTIONS (1)
  - URTICARIA [None]
